FAERS Safety Report 8986489 (Version 1)
Quarter: 2012Q4

REPORT INFORMATION
  Report Type: 
  Country: US (occurrence: US)
  Receive Date: 20121227
  Receipt Date: 20121227
  Transmission Date: 20130627
  Serious: Yes (Death)
  Sender: FDA-Public Use
  Company Number: US-SANOFI-AVENTIS-2012SA093165

PATIENT
  Sex: Male

DRUGS (4)
  1. ZALTRAP [Suspect]
     Indication: DRUG USE FOR UNKNOWN INDICATION
     Route: 065
  2. FOLINIC ACID [Suspect]
     Indication: DRUG USE FOR UNKNOWN INDICATION
  3. FLUOROURACIL [Suspect]
     Indication: DRUG USE FOR UNKNOWN INDICATION
  4. IRINOTECAN [Suspect]
     Indication: DRUG USE FOR UNKNOWN INDICATION

REACTIONS (2)
  - Death [Fatal]
  - Influenza like illness [Unknown]
